FAERS Safety Report 20728985 (Version 1)
Quarter: 2022Q2

REPORT INFORMATION
  Report Type: Spontaneous
  Country: US (occurrence: US)
  Receive Date: 20220420
  Receipt Date: 20220420
  Transmission Date: 20220721
  Serious: Yes (Other)
  Sender: FDA-Public Use
  Company Number: US-TEVA-2022-US-2028238

PATIENT
  Age: 70 Year
  Sex: Male
  Weight: 103 kg

DRUGS (1)
  1. WARFARIN [Suspect]
     Active Substance: WARFARIN
     Indication: Anticoagulant therapy
     Route: 065

REACTIONS (3)
  - Haematoma muscle [Unknown]
  - Paraplegia [Unknown]
  - Sensory level [Unknown]
